FAERS Safety Report 26171372 (Version 1)
Quarter: 2025Q4

REPORT INFORMATION
  Report Type: Spontaneous
  Country: EU (occurrence: EU)
  Receive Date: 20251217
  Receipt Date: 20251217
  Transmission Date: 20260118
  Serious: Yes (Hospitalization)
  Sender: GUERBET
  Company Number: None

PATIENT
  Age: 85 Year
  Sex: Male
  Weight: 71 kg

DRUGS (6)
  1. OPTIRAY 350 [Suspect]
     Active Substance: IOVERSOL
     Indication: Computerised tomogram thorax
     Route: 013
     Dates: start: 20251014, end: 20251014
  2. CEFTRIAXONE SODIUM [Suspect]
     Active Substance: CEFTRIAXONE SODIUM
     Indication: Sepsis
     Dosage: UNE SEULE INJECTION
     Route: 042
     Dates: start: 20251014, end: 20251014
  3. HYDROCORTISONE (HEMISUCCINATE) [Concomitant]
     Indication: Sepsis
     Route: 042
     Dates: start: 20251014, end: 20251014
  4. CETIRIZINE HYDROCHLORIDE [Concomitant]
     Active Substance: CETIRIZINE HYDROCHLORIDE
     Indication: Product used for unknown indication
     Route: 048
     Dates: start: 20251014
  5. ACETAMINOPHEN [Concomitant]
     Active Substance: ACETAMINOPHEN
     Indication: Sepsis
     Route: 042
     Dates: start: 20251014, end: 20251014
  6. VENOFER [Concomitant]
     Active Substance: IRON SUCROSE
     Indication: Iron deficiency
     Route: 042
     Dates: start: 20251013, end: 20251013

REACTIONS (1)
  - Hyperaemia [Recovering/Resolving]

NARRATIVE: CASE EVENT DATE: 20251014
